FAERS Safety Report 4865374-6 (Version None)
Quarter: 2005Q4

REPORT INFORMATION
  Report Type: 
  Country: None (occurrence: None)
  Receive Date: 20051223
  Receipt Date: 20050204
  Transmission Date: 20060501
  Serious: Yes (Hospitalization)
  Sender: FDA-Public Use
  Company Number: US-ABBOTT-05P-163-0289823-01

PATIENT
  Sex: Female
  Weight: 74.002 kg

DRUGS (17)
  1. TARKA [Suspect]
     Indication: HYPERTENSION
     Dosage: 02/180 MG
     Route: 048
     Dates: start: 20041125, end: 20041208
  2. TARKA [Suspect]
     Dosage: 02/180 MG
     Dates: start: 20041209, end: 20041222
  3. TARKA [Suspect]
     Dosage: 04/240 MG
     Dates: start: 20041223, end: 20050105
  4. TARKA [Suspect]
     Dosage: 04/240 MG
     Dates: start: 20050106, end: 20050118
  5. TARKA [Suspect]
     Dosage: 04/240 MG
     Dates: start: 20050119, end: 20050216
  6. LISINOPRIL [Concomitant]
     Indication: HYPERTENSION
     Dates: start: 20041026, end: 20041110
  7. LISINOPRIL [Concomitant]
     Dates: start: 20041111, end: 20041124
  8. TORSEMIDE [Concomitant]
     Indication: HYPERTENSION
     Dates: start: 20041026, end: 20041110
  9. TORSEMIDE [Concomitant]
     Dates: start: 20041111, end: 20041124
  10. TORSEMIDE [Concomitant]
     Dates: start: 20050106, end: 20050106
  11. INSULIN GLARGINE [Concomitant]
     Indication: DIABETES MELLITUS NON-INSULIN-DEPENDENT
     Dates: start: 20041209
  12. METOPROLOL [Concomitant]
     Indication: DRUG USE FOR UNKNOWN INDICATION
     Dates: start: 20050101, end: 20050216
  13. RALOXIFENE HYDROCHLORIDE [Concomitant]
     Indication: OSTEOPOROSIS PROPHYLAXIS
     Dates: start: 20011009
  14. ASPIRIN [Concomitant]
     Indication: THROMBOSIS PROPHYLAXIS
     Dates: start: 19991008
  15. ROSIGLITAZONE MALEATE [Concomitant]
     Indication: DIABETES MELLITUS NON-INSULIN-DEPENDENT
     Dates: start: 20040123, end: 20050413
  16. METFORMIN HYDROCHLORIDE [Concomitant]
     Indication: DIABETES MELLITUS NON-INSULIN-DEPENDENT
     Dates: start: 20020430
  17. ATORVASTATIN [Concomitant]
     Indication: HYPERLIPIDAEMIA
     Dates: start: 19980114, end: 20050111

REACTIONS (4)
  - DIZZINESS [None]
  - NAUSEA [None]
  - SYNCOPE VASOVAGAL [None]
  - VOMITING [None]
